FAERS Safety Report 6099394-3 (Version None)
Quarter: 2009Q1

REPORT INFORMATION
  Report Type: 
  Country: None (occurrence: None)
  Receive Date: 20090226
  Receipt Date: 20090226
  Transmission Date: 20090719
  Serious: Yes (Hospitalization)
  Sender: FDA-Public Use
  Company Number: None

PATIENT
  Age: 79 Year
  Sex: Male

DRUGS (1)
  1. GLYBURIDE [Suspect]
     Indication: DIABETES MELLITUS
     Dosage: 2.5 MG EVERYDAY PO
     Route: 048
     Dates: start: 20001114, end: 20090210

REACTIONS (5)
  - HYPOGLYCAEMIA [None]
  - LOSS OF CONSCIOUSNESS [None]
  - PALLOR [None]
  - SYNCOPE [None]
  - TREMOR [None]
